FAERS Safety Report 26053346 (Version 2)
Quarter: 2025Q4

REPORT INFORMATION
  Report Type: Spontaneous
  Country: US (occurrence: US)
  Receive Date: 20251117
  Receipt Date: 20251117
  Transmission Date: 20260118
  Serious: Yes (Life-Threatening, Other)
  Sender: PFIZER
  Company Number: US-PFIZER INC-PV202500133477

PATIENT
  Age: 20 Year
  Sex: Female

DRUGS (14)
  1. RITUXIMAB [Suspect]
     Active Substance: RITUXIMAB
     Indication: Autoimmune neutropenia
     Dosage: UNK, MONTHLY
  2. RITUXIMAB [Suspect]
     Active Substance: RITUXIMAB
     Indication: Hypogammaglobulinaemia
  3. RITUXIMAB [Suspect]
     Active Substance: RITUXIMAB
     Indication: Immunodeficiency common variable
  4. FILGRASTIM [Suspect]
     Active Substance: FILGRASTIM
     Indication: Autoimmune neutropenia
     Dosage: UNK
  5. FILGRASTIM [Suspect]
     Active Substance: FILGRASTIM
     Indication: Hypogammaglobulinaemia
     Dosage: UNK TEMPORARY COURSE
  6. FILGRASTIM [Suspect]
     Active Substance: FILGRASTIM
     Indication: Immunodeficiency common variable
     Dosage: UNK,SEVERAL INCREASES IN THE FREQUENCY OF FILGRASTIM
  7. FILGRASTIM [Suspect]
     Active Substance: FILGRASTIM
     Dosage: UNK, DAILY
  8. FILGRASTIM [Suspect]
     Active Substance: FILGRASTIM
     Dosage: UNK, 2X/WEEK
  9. FILGRASTIM [Suspect]
     Active Substance: FILGRASTIM
     Dosage: UNK, DAILY
  10. HUMAN IMMUNOGLOBULIN G [Suspect]
     Active Substance: HUMAN IMMUNOGLOBULIN G
     Indication: Autoimmune neutropenia
     Dosage: UNK
     Route: 042
  11. HUMAN IMMUNOGLOBULIN G [Suspect]
     Active Substance: HUMAN IMMUNOGLOBULIN G
     Indication: Hypogammaglobulinaemia
     Dosage: UNK,TEMPORARY COURSE
     Route: 042
  12. HUMAN IMMUNOGLOBULIN G [Suspect]
     Active Substance: HUMAN IMMUNOGLOBULIN G
     Indication: Immunodeficiency common variable
     Dosage: UNK,SEVERAL INCREASES IN THE FREQUENCY
     Route: 042
  13. HUMAN IMMUNOGLOBULIN G [Suspect]
     Active Substance: HUMAN IMMUNOGLOBULIN G
     Dosage: UNK, WEEKLY
     Route: 042
  14. HUMAN IMMUNOGLOBULIN G [Suspect]
     Active Substance: HUMAN IMMUNOGLOBULIN G
     Dosage: UNK, EVERY 3 WEEKS
     Route: 042

REACTIONS (3)
  - Drug ineffective [Unknown]
  - Drug ineffective for unapproved indication [Unknown]
  - Off label use [Unknown]
